FAERS Safety Report 4755797-8 (Version None)
Quarter: 2005Q3

REPORT INFORMATION
  Report Type: 
  Country: None (occurrence: None)
  Receive Date: 20050830
  Receipt Date: 20050729
  Transmission Date: 20060218
  Serious: No
  Sender: FDA-Public Use
  Company Number: US-BRISTOL-MYERS SQUIBB COMPANY-13058474

PATIENT

DRUGS (5)
  1. ABILIFY [Suspect]
     Route: 048
  2. QUININE SULFATE [Interacting]
     Indication: RESTLESS LEGS SYNDROME
  3. CINCHONA BARK [Interacting]
  4. CITALOPRAM HYDROBROMIDE [Interacting]
  5. SLO-MAG [Concomitant]

REACTIONS (2)
  - DRUG INTERACTION [None]
  - TRISMUS [None]
